FAERS Safety Report 16198133 (Version 1)
Quarter: 2019Q2

REPORT INFORMATION
  Report Type: Spontaneous
  Country: US (occurrence: US)
  Receive Date: 20190312
  Receipt Date: 20190312
  Transmission Date: 20190711
  Serious: No
  Sender: FDA-Public Use
  Company Number: None

PATIENT
  Age: 57 Year
  Sex: Male

DRUGS (1)
  1. HARVONI [Suspect]
     Active Substance: LEDIPASVIR\SOFOSBUVIR
     Route: 048
     Dates: start: 20190219

REACTIONS (5)
  - Insomnia [None]
  - Heart rate increased [None]
  - Cognitive disorder [None]
  - Pain in extremity [None]
  - Nausea [None]

NARRATIVE: CASE EVENT DATE: 20190305
